FAERS Safety Report 4401349-9 (Version None)
Quarter: 2004Q3

REPORT INFORMATION
  Report Type: 
  Country: None (occurrence: None)
  Receive Date: 20040907
  Receipt Date: 20040322
  Transmission Date: 20050211
  Serious: Yes (Other)
  Sender: FDA-Public Use
  Company Number: US-BRISTOL-MYERS SQUIBB COMPANY-12539276

PATIENT
  Age: 1 Month
  Sex: Female

DRUGS (6)
  1. COUMADIN [Suspect]
     Dosage: 2MG ALTERNATING WITH 3 MG QD-DOSE HELD. LOT# 2MG-TL016A EXP 9/05, LOT# 1MG TL926B EXP 7/05
     Route: 048
     Dates: start: 20040317
  2. METOCLOPRAMIDE [Concomitant]
  3. FUROSEMIDE [Concomitant]
  4. SUCRALFATE [Concomitant]
  5. CAPTOPRIL [Concomitant]
  6. LANSOPRAZOLE [Concomitant]

REACTIONS (1)
  - INTERNATIONAL NORMALISED RATIO INCREASED [None]
